FAERS Safety Report 4602217-X (Version None)
Quarter: 2005Q1

REPORT INFORMATION
  Report Type: 
  Country: None (occurrence: None)
  Receive Date: 20050201
  Receipt Date: 20041019
  Transmission Date: 20050727
  Serious: Yes (Other)
  Sender: FDA-Public Use
  Company Number: 200420873BWH

PATIENT
  Sex: Male

DRUGS (1)
  1. MOXIFLOXACIN HCL [Suspect]
     Indication: URINARY TRACT INFECTION
     Dosage: 400 MG, QD, ORAL
     Route: 048
     Dates: start: 20041009, end: 20041019

REACTIONS (1)
  - LIVER FUNCTION TEST ABNORMAL [None]
